FAERS Safety Report 5423734-9 (Version None)
Quarter: 2007Q3

REPORT INFORMATION
  Report Type: 
  Country: None (occurrence: None)
  Receive Date: 20070727
  Receipt Date: 20040228
  Transmission Date: 20080115
  Serious: Yes (Hospitalization)
  Sender: FDA-Public Use
  Company Number: THYM-10195

PATIENT
  Age: 51 Year
  Sex: Male
  Weight: 101.4 kg

DRUGS (6)
  1. THYMOGLOBULIN [Suspect]
     Indication: RENAL TRANSPLANT
     Dosage: 100 MG QD
     Dates: start: 20030828, end: 20030828
  2. THYMOGLOBULIN [Suspect]
     Indication: RENAL TRANSPLANT
     Dosage: 50 MG QD
     Dates: start: 20030829, end: 20030829
  3. THYMOGLOBULIN [Suspect]
     Indication: RENAL TRANSPLANT
     Dosage: 100 MG QD
     Dates: start: 20030830, end: 20030830
  4. SOLU-MEDROL [Concomitant]
  5. RAPAMUNE [Concomitant]
  6. GENERAL ANESTHESIA [Concomitant]

REACTIONS (5)
  - GRAFT DYSFUNCTION [None]
  - HYPOTENSION [None]
  - POST PROCEDURAL COMPLICATION [None]
  - PULMONARY OEDEMA [None]
  - TROPONIN INCREASED [None]
